FAERS Safety Report 9745969 (Version 2)
Quarter: 2013Q4

REPORT INFORMATION
  Report Type: Spontaneous
  Country: US (occurrence: US)
  Receive Date: 20131211
  Receipt Date: 20131211
  Transmission Date: 20140711
  Serious: Yes (Other)
  Sender: FDA-Public Use
  Company Number: US-PFIZER INC-2013347581

PATIENT
  Age: 86 Year
  Sex: Male

DRUGS (23)
  1. LYRICA [Suspect]
     Dosage: 100 MG, 2X/DAY
     Route: 048
     Dates: start: 20131111
  2. NITROSTAT [Concomitant]
     Dosage: 0.4 MG, (AT 1ST SIGN OF ATTACK;REPEAT EVERY 5MIN UNTIL RELIEF;IF PAIN PERSISTS AFTER 3 TAB IN 15MIN)
     Route: 060
     Dates: start: 20121126
  3. ALEVE [Concomitant]
     Dosage: 220 MG, TAKE 2 TABLET BY ORAL ROUTE EVERY 12 HOURS AS NEEDED
     Route: 048
     Dates: start: 20130508
  4. ALLOPURINOL [Concomitant]
     Dosage: 100 MG, 1X/DAY
     Route: 048
     Dates: start: 20130313
  5. AMITRIPTYLINE [Concomitant]
     Dosage: 50 MG, 1X/DAY AT BEDTIME
     Route: 048
     Dates: start: 20071213
  6. ASPIRIN [Concomitant]
     Dosage: 81 MG, 1X/DAY
     Route: 048
     Dates: start: 20111028
  7. ATENOLOL [Concomitant]
     Dosage: 50 MG, TAKE 0.5 TABLET BY ORAL ROUTE 2 TIMES EVERYDAY
     Route: 048
     Dates: start: 20131111
  8. CALTRATE 600+D [Concomitant]
     Dosage: (1,500MG)-400 UNIT CHEWABLE TABLET
     Dates: start: 20131111
  9. CARAFATE [Concomitant]
     Dosage: 1 G, 4X/DAY; BEFORE MEAL + @ HS
     Route: 048
     Dates: start: 20120430
  10. CENTRUM [Concomitant]
     Dosage: 1 DF, 1X/DAY (18MG-400MCG TABLET; 1 TABLET EVERY DAY WITH FOOD)
     Route: 048
  11. CEPHALEXIN [Concomitant]
     Dosage: 500 MG, EVERY 12 HOURS
     Route: 048
     Dates: start: 20131021
  12. IMDUR [Concomitant]
     Dosage: 30MG 24 HR TAB; EVERY DAY IN THE MORNING
     Route: 048
     Dates: start: 20130306
  13. KLONOPIN [Concomitant]
     Dosage: 0.5 MG, 1X/DAY (QHS)
     Route: 048
     Dates: start: 20130904
  14. LANOXIN [Concomitant]
     Dosage: 125 UG, 1X/DAY
     Route: 048
     Dates: start: 20130306
  15. NYSTATIN/TRIAMCINOLONE [Concomitant]
     Dosage: 100,000 UNIT/GRAM-0.1% OINTMENT
     Route: 061
     Dates: start: 20130403
  16. OCUVITE [Concomitant]
     Dosage: 1000 UNIT-60 UNIT-2MG TABLET
     Dates: start: 20130403
  17. OXYBUTYNIN CHLORIDE [Concomitant]
     Dosage: 24 HR EXTENDED RELEASE;10 MG, 1X/DAY
     Route: 048
     Dates: start: 20130731
  18. PREDNISONE [Concomitant]
     Dosage: 5 MG, 1X/DAY
     Route: 048
     Dates: start: 20131021
  19. PRILOSEC [Concomitant]
     Dosage: 20 MG, 2X/DAY; BEFORE A MEAL
     Route: 048
     Dates: start: 20130220
  20. SENNA-S [Concomitant]
     Dosage: 1 DF (8.6MG-50MG), 2X/DAY
     Route: 048
     Dates: start: 20130222
  21. SIMVASTATIN [Concomitant]
     Dosage: 20 MG, 1X/DAY
     Route: 048
     Dates: start: 20130603
  22. TRAMADOL [Concomitant]
     Dosage: 50 MG, EVERY 6 HOURS AS NEEDED
     Route: 048
     Dates: start: 20130426
  23. TYLENOL EX STR ARTHRITIS PAIN [Concomitant]
     Dosage: 500 MG, 2X/DAY; EVERY 6 HOURS AS NEEDED
     Route: 048
     Dates: start: 20131009

REACTIONS (1)
  - Urinary tract infection [Unknown]
